FAERS Safety Report 9353026 (Version 1)
Quarter: 2013Q2

REPORT INFORMATION
  Report Type: Spontaneous
  Country: US (occurrence: None)
  Receive Date: 20130617
  Receipt Date: 20130617
  Transmission Date: 20140414
  Serious: Yes (Death)
  Sender: FDA-Public Use
  Company Number: None

PATIENT
  Age: 49 Year
  Sex: Male
  Weight: 84.82 kg

DRUGS (1)
  1. BUPROPION XL [Suspect]
     Dosage: 1 TABLET PER DAY FOR 1 WEEK  PO
     Route: 048

REACTIONS (1)
  - Sudden death [None]
